FAERS Safety Report 5702795-3 (Version None)
Quarter: 2008Q2

REPORT INFORMATION
  Report Type: 
  Country: None (occurrence: None)
  Receive Date: 20080411
  Receipt Date: 20080401
  Transmission Date: 20081010
  Serious: Yes (Hospitalization)
  Sender: FDA-Public Use
  Company Number: US-ELI_LILLY_AND_COMPANY-US200801006403

PATIENT
  Sex: Female

DRUGS (13)
  1. BYETTA [Suspect]
     Dosage: 5 UG, 2/D
     Route: 058
     Dates: start: 20060301, end: 20060401
  2. BYETTA [Suspect]
     Dosage: 10 UG, 2/D
     Route: 058
     Dates: start: 20060401, end: 20071101
  3. METOPROLOL TARTRATE [Concomitant]
     Indication: HYPERTENSION
     Dosage: 25 MG, UNKNOWN
  4. GLYBURIDE [Concomitant]
     Indication: DIABETES MELLITUS
     Dosage: 5 MG, 2/D
  5. LEVOTHYROXINE SODIUM [Concomitant]
     Indication: HYPOTHYROIDISM
  6. POTASSIUM CHLORIDE [Concomitant]
     Indication: ELECTROLYTE SUBSTITUTION THERAPY
     Dosage: 20 MEQ, UNKNOWN
  7. RYTHMOL [Concomitant]
     Dosage: 325 MG, UNKNOWN
  8. BUMETANIDE [Concomitant]
     Indication: HYPERTENSION
     Dosage: 2 MG, DAILY (1/D)
  9. METFORMIN HCL [Concomitant]
     Indication: DIABETES MELLITUS
  10. DIOVAN /SCH/ [Concomitant]
     Indication: HYPERTENSION
     Dosage: 80 MG, UNKNOWN
  11. LIPITOR [Concomitant]
     Indication: HYPERLIPIDAEMIA
     Dosage: 10 MG, UNKNOWN
  12. PROMETHAZINE [Concomitant]
  13. NITROGLYCERIN [Concomitant]
     Dosage: UNK, AS NEEDED

REACTIONS (6)
  - ALOPECIA [None]
  - DIABETIC NEUROPATHY [None]
  - INJECTION SITE HAEMORRHAGE [None]
  - INJECTION SITE URTICARIA [None]
  - THYROID CANCER METASTATIC [None]
  - WEIGHT DECREASED [None]
